APPROVED DRUG PRODUCT: HYDRALAZINE HYDROCHLORIDE
Active Ingredient: HYDRALAZINE HYDROCHLORIDE
Strength: 25MG
Dosage Form/Route: TABLET;ORAL
Application: A090413 | Product #002
Applicant: PHARMOBEDIENT CONSULTING LLC
Approved: Dec 8, 2010 | RLD: No | RS: No | Type: DISCN